FAERS Safety Report 25431497 (Version 1)
Quarter: 2025Q2

REPORT INFORMATION
  Report Type: Other
  Country: CN (occurrence: CN)
  Receive Date: 20250613
  Receipt Date: 20250613
  Transmission Date: 20250717
  Serious: Yes (Other)
  Sender: B BRAUN
  Company Number: CN-B.Braun Medical Inc.-2178442

PATIENT
  Age: 69 Year
  Sex: Female

DRUGS (2)
  1. CEFUROXIME [Suspect]
     Active Substance: CEFUROXIME
     Indication: Cataract
  2. CEFUROXIME [Suspect]
     Active Substance: CEFUROXIME
     Indication: Surgery

REACTIONS (1)
  - Retinal toxicity [Recovered/Resolved]
